FAERS Safety Report 4850616-3 (Version None)
Quarter: 2005Q4

REPORT INFORMATION
  Report Type: 
  Country: None (occurrence: None)
  Receive Date: 20051212
  Receipt Date: 20051130
  Transmission Date: 20060501
  Serious: Yes (Death, Hospitalization)
  Sender: FDA-Public Use
  Company Number: JP-JNJFOC-20050607334

PATIENT
  Sex: Male
  Weight: 57 kg

DRUGS (6)
  1. REMICADE [Suspect]
     Route: 042
  2. REMICADE [Suspect]
     Route: 042
  3. REMICADE [Suspect]
     Route: 042
  4. REMICADE [Suspect]
     Route: 042
  5. REMICADE [Suspect]
     Indication: CROHN'S DISEASE
     Route: 042
  6. PENTASA [Concomitant]
     Indication: CROHN'S DISEASE
     Dosage: 9 TAB
     Route: 048

REACTIONS (6)
  - ACUTE RESPIRATORY FAILURE [None]
  - INFUSION RELATED REACTION [None]
  - METHICILLIN-RESISTANT STAPHYLOCOCCAL AUREUS TEST POSITIVE [None]
  - NEUTROPENIA [None]
  - PNEUMONIA [None]
  - RASH [None]
